FAERS Safety Report 20480739 (Version 1)
Quarter: 2022Q1

REPORT INFORMATION
  Report Type: Spontaneous
  Country: DE (occurrence: DE)
  Receive Date: 20220216
  Receipt Date: 20220216
  Transmission Date: 20220423
  Serious: Yes (Other)
  Sender: FDA-Public Use
  Company Number: None

PATIENT
  Age: 63 Year
  Sex: Female

DRUGS (4)
  1. ATORVASTATIN [Suspect]
     Active Substance: ATORVASTATIN
     Indication: Blood cholesterol increased
     Dosage: 20 MG, UNKNOWN
     Route: 065
  2. BARICITINIB [Suspect]
     Active Substance: BARICITINIB
     Indication: Rheumatoid arthritis
     Dosage: 4 MG, DAILY
     Route: 048
     Dates: start: 20190607
  3. BARICITINIB [Suspect]
     Active Substance: BARICITINIB
     Dosage: 2 MG, DAILY
     Route: 065
     Dates: start: 202109
  4. METOPROLOL [Concomitant]
     Active Substance: METOPROLOL
     Indication: Product used for unknown indication
     Dosage: UNK
     Route: 065

REACTIONS (8)
  - Rheumatoid arthritis [Recovered/Resolved]
  - Osteoarthritis [Unknown]
  - Heart rate increased [Not Recovered/Not Resolved]
  - Sacral pain [Not Recovered/Not Resolved]
  - Dental restoration failure [Not Recovered/Not Resolved]
  - Synovial cyst [Recovered/Resolved]
  - Pain in extremity [Recovering/Resolving]
  - Contusion [Unknown]
